FAERS Safety Report 5902722-X (Version None)
Quarter: 2008Q3

REPORT INFORMATION
  Report Type: 
  Country: None (occurrence: None)
  Receive Date: 20080929
  Receipt Date: 20080929
  Transmission Date: 20090109
  Serious: Yes (Congenital Anomaly)
  Sender: FDA-Public Use
  Company Number: None

PATIENT
  Sex: Male
  Weight: 81.6475 kg

DRUGS (2)
  1. BUDESONIDE [Suspect]
     Indication: ANOREXIA
     Dosage: 3 MG 1 X 2DAY
     Dates: start: 20080901, end: 20080907
  2. BUDESONIDE [Suspect]
     Indication: HYPERSOMNIA
     Dosage: 3 MG 1 X 2DAY
     Dates: start: 20080901, end: 20080907

REACTIONS (2)
  - ANOREXIA [None]
  - HYPERSOMNIA [None]
